FAERS Safety Report 24910852 (Version 1)
Quarter: 2025Q1

REPORT INFORMATION
  Report Type: Report from Study
  Country: CA (occurrence: CA)
  Receive Date: 20250131
  Receipt Date: 20250131
  Transmission Date: 20250409
  Serious: Yes (Hospitalization)
  Sender: AMARIN
  Company Number: CA-Amarin Pharma  Inc-2025AMR000046

PATIENT
  Age: 42 Year
  Sex: Male

DRUGS (1)
  1. VASCEPA [Suspect]
     Active Substance: ICOSAPENT ETHYL
     Indication: Cardiovascular event prophylaxis
     Dates: start: 20231211

REACTIONS (1)
  - Alcoholism [Unknown]

NARRATIVE: CASE EVENT DATE: 20250101
